FAERS Safety Report 20331776 (Version 5)
Quarter: 2022Q1

REPORT INFORMATION
  Report Type: Spontaneous
  Country: US (occurrence: US)
  Receive Date: 20220113
  Receipt Date: 20220310
  Transmission Date: 20220423
  Serious: Yes (Other)
  Sender: FDA-Public Use
  Company Number: US-UNITED THERAPEUTICS-UNT-2022-000349

PATIENT
  Age: 73 Year
  Sex: Male
  Weight: 90.703 kg

DRUGS (4)
  1. TYVASO [Suspect]
     Active Substance: TREPROSTINIL
     Indication: Pulmonary arterial hypertension
     Dosage: UNK
     Dates: start: 20210601
  2. TYVASO [Suspect]
     Active Substance: TREPROSTINIL
     Dosage: 72 ?G, QID
     Dates: start: 2021, end: 20211227
  3. TYVASO [Suspect]
     Active Substance: TREPROSTINIL
     Dosage: 18-72 ?G, QID
  4. TYVASO [Suspect]
     Active Substance: TREPROSTINIL
     Dosage: UNK (RESTART)
     Dates: start: 20220227

REACTIONS (4)
  - Choking [Unknown]
  - Nasopharyngitis [Unknown]
  - Dyspnoea [Unknown]
  - Asthenia [Unknown]

NARRATIVE: CASE EVENT DATE: 20211201
